FAERS Safety Report 7158110-4 (Version None)
Quarter: 2010Q4

REPORT INFORMATION
  Report Type: 
  Country: None (occurrence: None)
  Receive Date: 20101214
  Receipt Date: 20100323
  Transmission Date: 20110411
  Serious: No
  Sender: FDA-Public Use
  Company Number: US-ASTRAZENECA-2010SE18921

PATIENT
  Age: 25510 Day
  Sex: Female
  Weight: 54.4 kg

DRUGS (4)
  1. ROSUVASTATIN [Suspect]
     Indication: HYPERCHOLESTEROLAEMIA
     Route: 048
     Dates: start: 20100106, end: 20100312
  2. ROSUVASTATIN [Suspect]
     Route: 048
     Dates: start: 20100312, end: 20100317
  3. ROSUVASTATIN [Suspect]
     Route: 048
     Dates: start: 20100317
  4. NIASPAN [Suspect]
     Indication: HYPERCHOLESTEROLAEMIA
     Route: 048

REACTIONS (4)
  - HIGH DENSITY LIPOPROTEIN DECREASED [None]
  - LOW DENSITY LIPOPROTEIN INCREASED [None]
  - MUSCLE SPASMS [None]
  - MYALGIA [None]
